FAERS Safety Report 8793363 (Version 2)
Quarter: 2012Q4

REPORT INFORMATION
  Report Type: 
  Country: JP (occurrence: JP)
  Receive Date: 20120917
  Receipt Date: 20121001
  Transmission Date: 20130627
  Serious: Yes (Hospitalization)
  Sender: FDA-Public Use
  Company Number: JP-ABBOTT-12P-087-0978649-00

PATIENT
  Age: 71 Year
  Sex: Male
  Weight: 48.1 kg

DRUGS (14)
  1. KLARICID [Suspect]
     Indication: ATYPICAL MYCOBACTERIAL INFECTION
     Route: 048
     Dates: start: 20120215, end: 20120823
  2. RIFAMPICIN [Suspect]
     Indication: ATYPICAL MYCOBACTERIAL INFECTION
     Route: 048
     Dates: start: 20120215, end: 20120823
  3. ETHAMBUTOL HYDROCHLORIDE [Concomitant]
     Indication: ATYPICAL MYCOBACTERIAL INFECTION
     Route: 048
     Dates: start: 20120215, end: 20120823
  4. SILODOSIN [Concomitant]
     Indication: BENIGN PROSTATIC HYPERPLASIA
     Route: 048
     Dates: start: 20110228
  5. DUTASTERIDE [Concomitant]
     Indication: BENIGN PROSTATIC HYPERPLASIA
     Route: 048
     Dates: start: 20110228
  6. TERBINAFINE HYDROCHLORIDE [Concomitant]
     Indication: ONYCHOMYCOSIS
     Route: 048
     Dates: start: 20110927
  7. ASPIRIN [Concomitant]
     Indication: MYOCARDIAL INFARCTION
     Route: 048
  8. LANSOPRAZOLE [Concomitant]
     Indication: GASTROOESOPHAGEAL REFLUX DISEASE
     Route: 048
  9. CANDESARTAN CILEXETIL [Concomitant]
     Indication: HYPERTENSION
     Route: 048
  10. ATORVASTATIN CALCIUM HYDRATE [Concomitant]
     Indication: HYPERLIPIDAEMIA
     Route: 048
  11. FLUTICASONE PROPIONATE [Concomitant]
     Route: 055
  12. TEPRENONE [Concomitant]
     Route: 048
     Dates: start: 20110419
  13. BROTIZOLAM [Concomitant]
     Route: 048
     Dates: start: 20120322
  14. SALICYLIC ACID [Concomitant]
     Route: 061
     Dates: start: 20120723

REACTIONS (1)
  - Eosinophilic pneumonia [Recovering/Resolving]
